FAERS Safety Report 10195155 (Version 2)
Quarter: 2014Q2

REPORT INFORMATION
  Report Type: Spontaneous
  Country: FR (occurrence: FR)
  Receive Date: 20140526
  Receipt Date: 20140529
  Transmission Date: 20141212
  Serious: Yes (Hospitalization)
  Sender: FDA-Public Use
  Company Number: FR-PFIZER INC-2014143685

PATIENT
  Age: 69 Year
  Sex: Male

DRUGS (9)
  1. ORELOX [Suspect]
     Indication: LUNG INFECTION
     Dosage: 1 DF, 3X/DAY
     Route: 048
     Dates: start: 20130912, end: 20130919
  2. SPIFEN [Suspect]
     Indication: LUNG INFECTION
     Dosage: 1 DF, 3X/DAY
     Route: 048
     Dates: start: 20130912, end: 20130919
  3. RHINOTROPHYL [Suspect]
     Indication: LUNG INFECTION
     Dosage: UNK
     Route: 045
     Dates: start: 20130912, end: 20130919
  4. INEXIUM [Suspect]
     Dosage: 1 DF, DAILY
     Route: 048
     Dates: start: 20130912, end: 20130919
  5. DIMETANE [Suspect]
     Indication: LUNG INFECTION
     Dosage: UNK
     Route: 048
     Dates: start: 20130912, end: 20130919
  6. KARDEGIC [Concomitant]
  7. TAHOR [Concomitant]
  8. AERIUS [Concomitant]
  9. FELODIPINE [Concomitant]

REACTIONS (4)
  - Dysphonia [Recovered/Resolved]
  - Urticaria [Recovered/Resolved]
  - Eyelid oedema [Recovered/Resolved]
  - Angioedema [Recovered/Resolved]
